FAERS Safety Report 4364767-3 (Version None)
Quarter: 2004Q2

REPORT INFORMATION
  Report Type: 
  Country: None (occurrence: None)
  Receive Date: 20040521
  Receipt Date: 20040504
  Transmission Date: 20050107
  Serious: Yes (Death)
  Sender: FDA-Public Use
  Company Number: US_031199068

PATIENT
  Age: 21 Year
  Sex: Female
  Weight: 84 kg

DRUGS (9)
  1. ZYPREXA [Suspect]
     Indication: BIPOLAR DISORDER
     Dosage: 30 MG/D DAY
     Dates: start: 20010901, end: 20011022
  2. ZYPREXA [Suspect]
     Indication: PSYCHOTIC DISORDER
     Dosage: 30 MG/D DAY
     Dates: start: 20010901, end: 20011022
  3. SEROQUEL [Concomitant]
  4. ATIVAN [Concomitant]
  5. VISTARIL [Concomitant]
  6. DEPO-PROVERA [Concomitant]
  7. AMBIEN [Concomitant]
  8. SEPTRA [Concomitant]
  9. TEMAZEPAM [Concomitant]

REACTIONS (21)
  - ABNORMAL BEHAVIOUR [None]
  - BLOOD AMYLASE DECREASED [None]
  - BLOOD CHLORIDE INCREASED [None]
  - BLOOD GLUCOSE INCREASED [None]
  - BLOOD POTASSIUM INCREASED [None]
  - BLOOD SODIUM INCREASED [None]
  - BLOOD UREA INCREASED [None]
  - DECREASED APPETITE [None]
  - DRUG LEVEL INCREASED [None]
  - GRANDIOSITY [None]
  - HEADACHE [None]
  - INSOMNIA [None]
  - LOGORRHOEA [None]
  - METABOLIC DISORDER [None]
  - PANCREATITIS HAEMORRHAGIC [None]
  - PANIC ATTACK [None]
  - PCO2 DECREASED [None]
  - PSYCHOMOTOR HYPERACTIVITY [None]
  - REFUSAL OF TREATMENT BY PATIENT [None]
  - SOMNOLENCE [None]
  - URINARY TRACT INFECTION [None]
